FAERS Safety Report 22332118 (Version 1)
Quarter: 2023Q2

REPORT INFORMATION
  Report Type: Spontaneous
  Country: US (occurrence: None)
  Receive Date: 20230515
  Receipt Date: 20230515
  Transmission Date: 20230722
  Serious: No
  Sender: FDA-Public Use
  Company Number: None

PATIENT
  Age: 71 Year
  Sex: Male
  Weight: 83.91 kg

DRUGS (16)
  1. REPATHA [Suspect]
     Active Substance: EVOLOCUMAB
     Indication: Blood cholesterol increased
     Dosage: FREQUENCY : EVERY OTHER WEEK;?
     Route: 058
     Dates: start: 20230413, end: 20230502
  2. LOSARTAN [Concomitant]
     Active Substance: LOSARTAN
  3. ZOLOFT [Concomitant]
     Active Substance: SERTRALINE HYDROCHLORIDE
  4. L0THYYROXINE (SYNTHROID) [Concomitant]
  5. FLOMAX [Concomitant]
     Active Substance: TAMSULOSIN HYDROCHLORIDE
  6. TRADJENTA [Concomitant]
     Active Substance: LINAGLIPTIN
  7. JARDIANCE [Concomitant]
     Active Substance: EMPAGLIFLOZIN
  8. ISOSORBIDE [Concomitant]
     Active Substance: ISOSORBIDE
  9. EZETIMIBE [Concomitant]
     Active Substance: EZETIMIBE
  10. ECOTRIN [Concomitant]
     Active Substance: ASPIRIN
  11. NAPROXEN SODIUM [Concomitant]
     Active Substance: NAPROXEN SODIUM
  12. LORATADINE [Concomitant]
     Active Substance: LORATADINE
  13. C [Concomitant]
  14. CYANOCOBALAMIN\DEXPANTHENOL\NIACINAMIDE\PYRIDOXINE HYDROCHLORIDE\RIBOF [Concomitant]
     Active Substance: CYANOCOBALAMIN\DEXPANTHENOL\NIACINAMIDE\PYRIDOXINE HYDROCHLORIDE\RIBOFLAVIN 5^-PHOSPHATE SODIUM\THIA
  15. NITROGLYCERIN [Concomitant]
     Active Substance: NITROGLYCERIN
  16. HYDROXYZINE HYDROCHLORIDE [Concomitant]
     Active Substance: HYDROXYZINE HYDROCHLORIDE

REACTIONS (6)
  - Chills [None]
  - Pyrexia [None]
  - Influenza like illness [None]
  - Panic attack [None]
  - Fatigue [None]
  - COVID-19 [None]

NARRATIVE: CASE EVENT DATE: 20230413
